FAERS Safety Report 22160235 (Version 1)
Quarter: 2023Q1

REPORT INFORMATION
  Report Type: Spontaneous
  Country: US (occurrence: US)
  Receive Date: 20230331
  Receipt Date: 20230331
  Transmission Date: 20230418
  Serious: No
  Sender: FDA-Public Use
  Company Number: US-drreddys-SPO/USA/23/0161273

PATIENT
  Age: 42 Year
  Sex: Male

DRUGS (12)
  1. BUPRENORPHINE AND NALOXONE [Suspect]
     Active Substance: BUPRENORPHINE HYDROCHLORIDE\NALOXONE HYDROCHLORIDE
     Indication: Procedural pain
     Dosage: THROUGHOUT HIS HOSPITALIZATION, HIS DAILY BUPRENORPHINE INTAKE RANGED FROM 6 TO 14 MG; 2 MG/0.5 MG
  2. BUPRENORPHINE AND NALOXONE [Suspect]
     Active Substance: BUPRENORPHINE HYDROCHLORIDE\NALOXONE HYDROCHLORIDE
     Dosage: POST-OPERATIVE DAY 1; 2 MG/0.5 MG
  3. BUPRENORPHINE AND NALOXONE [Suspect]
     Active Substance: BUPRENORPHINE HYDROCHLORIDE\NALOXONE HYDROCHLORIDE
     Dosage: ON POST-OPERATIVE DAY 1; THROUGHOUT HIS HOSPITALIZATION, HIS DAILY BUPRENORPHINE INTAKE RANGED FROM
  4. GABAPENTIN [Concomitant]
     Active Substance: GABAPENTIN
     Indication: Analgesic therapy
  5. GABAPENTIN [Concomitant]
     Active Substance: GABAPENTIN
     Indication: Procedural pain
  6. KETOROLAC [Concomitant]
     Active Substance: KETOROLAC TROMETHAMINE
     Indication: Procedural pain
  7. KETAMINE [Concomitant]
     Active Substance: KETAMINE
     Indication: General anaesthesia
  8. KETAMINE [Concomitant]
     Active Substance: KETAMINE
     Indication: Procedural pain
  9. ALPRAZOLAM [Concomitant]
     Active Substance: ALPRAZOLAM
     Indication: Anxiety
  10. CELECOXIB [Concomitant]
     Active Substance: CELECOXIB
     Indication: Procedural pain
  11. CELECOXIB [Concomitant]
     Active Substance: CELECOXIB
     Indication: Analgesic therapy
  12. ACETAMINOPHEN [Concomitant]
     Active Substance: ACETAMINOPHEN
     Indication: Analgesic therapy

REACTIONS (4)
  - Chest discomfort [Unknown]
  - Nausea [Unknown]
  - Palpitations [Unknown]
  - Headache [Unknown]
